FAERS Safety Report 21800026 (Version 1)
Quarter: 2022Q4

REPORT INFORMATION
  Report Type: Spontaneous
  Country: ZA (occurrence: ZA)
  Receive Date: 20221230
  Receipt Date: 20221230
  Transmission Date: 20230113
  Serious: Yes (Other)
  Sender: FDA-Public Use
  Company Number: ZA-PFIZER INC-PV202200132697

PATIENT
  Age: 67 Year
  Sex: Female
  Weight: 67.7 kg

DRUGS (2)
  1. METHOTREXATE SODIUM [Suspect]
     Active Substance: METHOTREXATE SODIUM
     Indication: Rheumatoid arthritis
     Dosage: 17.5 MG, WEEKLY
     Dates: start: 202001, end: 202206
  2. LEFLUNOMIDE [Concomitant]
     Active Substance: LEFLUNOMIDE
     Indication: Rheumatoid arthritis
     Dosage: 20 MG, 5X/WEEK
     Dates: start: 202007

REACTIONS (8)
  - Cardiac failure [Unknown]
  - Congestive cardiomyopathy [Unknown]
  - Renal impairment [Unknown]
  - Hepatic function abnormal [Unknown]
  - Toxicity to various agents [Unknown]
  - Dyslipidaemia [Unknown]
  - Therapeutic product effect incomplete [Unknown]
  - Condition aggravated [Unknown]

NARRATIVE: CASE EVENT DATE: 20220617
